FAERS Safety Report 17137578 (Version 1)
Quarter: 2019Q4

REPORT INFORMATION
  Report Type: Report from Study
  Country: US (occurrence: US)
  Receive Date: 20191210
  Receipt Date: 20191210
  Transmission Date: 20200122
  Serious: Yes (Other)
  Sender: FDA-Public Use
  Company Number: US-AMGEN-USASL2019167059

PATIENT
  Age: 74 Year
  Sex: Female
  Weight: 110 kg

DRUGS (1)
  1. REPATHA [Suspect]
     Active Substance: EVOLOCUMAB
     Indication: LOW DENSITY LIPOPROTEIN INCREASED
     Dosage: 140 MILLIGRAM, Q2WK
     Route: 065
     Dates: start: 20190930, end: 20191007

REACTIONS (3)
  - Inappropriate schedule of product administration [Unknown]
  - Ear pain [Recovered/Resolved]
  - Drug hypersensitivity [Recovered/Resolved]

NARRATIVE: CASE EVENT DATE: 20190930
